FAERS Safety Report 9919943 (Version 2)
Quarter: 2014Q1

REPORT INFORMATION
  Report Type: Report from Study
  Country: AR (occurrence: AR)
  Receive Date: 20140224
  Receipt Date: 20140318
  Transmission Date: 20141002
  Serious: Yes (Other)
  Sender: FDA-Public Use
  Company Number: PHHY2014AR021681

PATIENT
  Sex: Male

DRUGS (1)
  1. EXELON [Suspect]
     Indication: DEMENTIA ALZHEIMER^S TYPE
     Dosage: 6 MG, BID
     Route: 048

REACTIONS (6)
  - Senile dementia [Unknown]
  - Aggression [Unknown]
  - Agnosia [Not Recovered/Not Resolved]
  - Confusional state [Unknown]
  - Coordination abnormal [Unknown]
  - Condition aggravated [Not Recovered/Not Resolved]
